FAERS Safety Report 10219761 (Version 1)
Quarter: 2014Q2

REPORT INFORMATION
  Report Type: Spontaneous
  Country: US (occurrence: None)
  Receive Date: 20140604
  Receipt Date: 20140604
  Transmission Date: 20141212
  Serious: No
  Sender: FDA-Public Use
  Company Number: None

PATIENT
  Age: 64 Year
  Sex: Male
  Weight: 112.9 kg

DRUGS (1)
  1. DAPTOMYCIN [Suspect]
     Indication: OSTEOMYELITIS
     Dosage: 1000 MG, OTHER, IV?
     Route: 042
     Dates: start: 20140505, end: 20140522

REACTIONS (1)
  - Rhabdomyolysis [None]
